FAERS Safety Report 9888965 (Version 2)
Quarter: 2014Q1

REPORT INFORMATION
  Report Type: Spontaneous
  Country: US (occurrence: None)
  Receive Date: 20140207
  Receipt Date: 20140327
  Transmission Date: 20141002
  Serious: Yes (Other)
  Sender: FDA-Public Use
  Company Number: US-MDCO-14-00026

PATIENT
  Sex: 0

DRUGS (1)
  1. ANGIOMAX [Suspect]
     Indication: PERCUTANEOUS CORONARY INTERVENTION
     Route: 040
     Dates: start: 201401, end: 201401

REACTIONS (4)
  - Drug ineffective [None]
  - Coagulation time shortened [None]
  - Coronary artery thrombosis [None]
  - Infusion site extravasation [None]
